FAERS Safety Report 7919523-3 (Version None)
Quarter: 2011Q4

REPORT INFORMATION
  Report Type: 
  Country: None (occurrence: None)
  Receive Date: 20111115
  Receipt Date: 20111115
  Transmission Date: 20120403
  Serious: Yes (Death, Life-Threatening, Hospitalization, Other)
  Sender: FDA-Public Use
  Company Number: DAV-DIA-001

PATIENT
  Age: 18 Year
  Sex: Female

DRUGS (3)
  1. FERROUS SULFATE TAB [Concomitant]
  2. DIAZEPAM [Suspect]
     Indication: ANXIETY
     Dosage: 60 MG
  3. DICLOFENAC SODIUM [Concomitant]

REACTIONS (22)
  - BRAIN DEATH [None]
  - MULTIPLE DRUG OVERDOSE [None]
  - HEPATIC NECROSIS [None]
  - GRAFT DYSFUNCTION [None]
  - GENERAL PHYSICAL HEALTH DETERIORATION [None]
  - INTRACRANIAL PRESSURE INCREASED [None]
  - SHOCK [None]
  - LIVER TRANSPLANT [None]
  - BLOOD IRON INCREASED [None]
  - ASPERGILLOSIS [None]
  - ENCEPHALOPATHY [None]
  - ACUTE RESPIRATORY DISTRESS SYNDROME [None]
  - HAEMORRHAGE [None]
  - PULMONARY HYPERTENSION [None]
  - GRAFT ISCHAEMIA [None]
  - RENAL FAILURE [None]
  - VASOPLEGIA SYNDROME [None]
  - RIGHT VENTRICULAR FAILURE [None]
  - PERFORATION BILE DUCT [None]
  - SEPSIS [None]
  - MULTI-ORGAN DISORDER [None]
  - SEPTIC SHOCK [None]
